FAERS Safety Report 8491045-3 (Version None)
Quarter: 2012Q3

REPORT INFORMATION
  Report Type: 
  Country: None (occurrence: None)
  Receive Date: 20120706
  Receipt Date: 20120628
  Transmission Date: 20120928
  Serious: Yes (Other)
  Sender: FDA-Public Use
  Company Number: US-BAYER-2011-074942

PATIENT
  Sex: Female

DRUGS (4)
  1. YAZ [Suspect]
  2. LITHIUM CARBONATE [Concomitant]
     Dosage: UNK MG, UNK
  3. IBUPROFEN [Concomitant]
     Dosage: 800 MG, UNK
  4. YASMIN [Suspect]

REACTIONS (3)
  - THROMBOSIS [None]
  - INJURY [None]
  - PAIN [None]
